FAERS Safety Report 18606215 (Version 2)
Quarter: 2020Q4

REPORT INFORMATION
  Report Type: Spontaneous
  Country: US (occurrence: US)
  Receive Date: 20201211
  Receipt Date: 20201215
  Transmission Date: 20210114
  Serious: No
  Sender: FDA-Public Use
  Company Number: NVSC2020US327649

PATIENT
  Sex: Female

DRUGS (2)
  1. DUREZOL [Concomitant]
     Active Substance: DIFLUPREDNATE
     Indication: PRODUCT USED FOR UNKNOWN INDICATION
     Route: 065
  2. ILEVRO [Suspect]
     Active Substance: NEPAFENAC
     Indication: PRODUCT USED FOR UNKNOWN INDICATION
     Dosage: 1 GTT BID
     Route: 065
     Dates: start: 20201203

REACTIONS (8)
  - Eye irritation [Unknown]
  - Visual impairment [Unknown]
  - Allergic reaction to excipient [Unknown]
  - Lip pruritus [Unknown]
  - Oral discomfort [Unknown]
  - Product physical issue [Unknown]
  - Oral pruritus [Unknown]
  - Eye pruritus [Unknown]
